FAERS Safety Report 13946601 (Version 3)
Quarter: 2018Q3

REPORT INFORMATION
  Report Type: Spontaneous
  Country: US (occurrence: US)
  Receive Date: 20170907
  Receipt Date: 20180920
  Transmission Date: 20181010
  Serious: Yes (Hospitalization, Other)
  Sender: FDA-Public Use
  Company Number: US-DSJP-DSU-2017-135633

PATIENT

DRUGS (3)
  1. BENICAR HCT [Suspect]
     Active Substance: HYDROCHLOROTHIAZIDE\OLMESARTAN MEDOXOMIL
     Dosage: 40?25 MG, QD
     Route: 048
     Dates: start: 20050106
  2. BENICAR HCT [Suspect]
     Active Substance: HYDROCHLOROTHIAZIDE\OLMESARTAN MEDOXOMIL
     Indication: PRODUCT USED FOR UNKNOWN INDICATION
     Dosage: 40?12.5, QD
     Route: 048
     Dates: start: 20050106
  3. BENICAR [Suspect]
     Active Substance: OLMESARTAN MEDOXOMIL
     Indication: PRODUCT USED FOR UNKNOWN INDICATION
     Dosage: 40 MG, QD
     Dates: start: 20050106, end: 20060406

REACTIONS (12)
  - Hypokalaemia [Recovering/Resolving]
  - Weight decreased [Unknown]
  - Haemorrhoids [Unknown]
  - Large intestine polyp [Recovered/Resolved]
  - Gastric ulcer [Unknown]
  - Barrett^s oesophagus [Unknown]
  - Hiatus hernia [Recovered/Resolved]
  - Orthostatic hypotension [Recovered/Resolved]
  - Gastrointestinal haemorrhage [Recovered/Resolved]
  - Anaemia [Recovering/Resolving]
  - Gastrooesophageal reflux disease [Unknown]
  - Diverticulum [Recovering/Resolving]

NARRATIVE: CASE EVENT DATE: 20050324
